FAERS Safety Report 13300456 (Version 2)
Quarter: 2017Q1

REPORT INFORMATION
  Report Type: Report from Study
  Country: JP (occurrence: JP)
  Receive Date: 20170307
  Receipt Date: 20170328
  Transmission Date: 20170428
  Serious: Yes (Hospitalization, Other)
  Sender: FDA-Public Use
  Company Number: JP-BRISTOL-MYERS SQUIBB COMPANY-BMS-2016-111072

PATIENT
  Age: 66 Year
  Sex: Female

DRUGS (1)
  1. NIVOLUMAB [Suspect]
     Active Substance: NIVOLUMAB
     Indication: NON-SMALL CELL LUNG CANCER RECURRENT
     Dosage: 3 MG/KG, UNK
     Route: 042
     Dates: start: 20160303, end: 20160920

REACTIONS (5)
  - Hyperkalaemia [Recovered/Resolved]
  - Cardiac tamponade [Unknown]
  - Pericardial drainage [Unknown]
  - Acute kidney injury [Recovered/Resolved]
  - Pericarditis malignant [Unknown]

NARRATIVE: CASE EVENT DATE: 2016
